FAERS Safety Report 26066524 (Version 1)
Quarter: 2025Q4

REPORT INFORMATION
  Report Type: Spontaneous
  Country: US (occurrence: US)
  Receive Date: 20251119
  Receipt Date: 20251119
  Transmission Date: 20260118
  Serious: No
  Sender: NOVO NORDISK
  Company Number: US-NOVOPROD-1425203

PATIENT
  Sex: Male

DRUGS (2)
  1. NOVOLOG [Suspect]
     Active Substance: INSULIN ASPART
     Indication: Type 2 diabetes mellitus
     Dosage: SLIDING SCALE - SOMETIMES 10, SOMETIMES 20, CAN BE 3 OR 4 TIMES A DAY
     Route: 058
     Dates: start: 2015
  2. LANTUS [Suspect]
     Active Substance: INSULIN GLARGINE
     Indication: Type 2 diabetes mellitus
     Dosage: UNK
     Route: 058

REACTIONS (1)
  - Visual impairment [Not Recovered/Not Resolved]
